FAERS Safety Report 9940202 (Version 1)
Quarter: 2014Q1

REPORT INFORMATION
  Report Type: Report from Study
  Country: US (occurrence: US)
  Receive Date: 20140303
  Receipt Date: 20140303
  Transmission Date: 20141002
  Serious: Yes (Hospitalization, Other)
  Sender: FDA-Public Use
  Company Number: US-ABBVIE-13P-163-1035324-00

PATIENT
  Age: 76 Year
  Sex: Female

DRUGS (8)
  1. HUMIRA [Suspect]
     Indication: PSORIASIS
     Dates: start: 2012
  2. LISINOPRIL HCTZ [Concomitant]
     Indication: HYPERTENSION
  3. DIAZEPAM [Concomitant]
     Indication: ANXIETY
     Dosage: QID PRN
  4. PRAMITEXOLE [Concomitant]
     Indication: RESTLESS LEGS SYNDROME
  5. CYMBALTA [Concomitant]
     Indication: DEPRESSION
  6. DILAUDID [Concomitant]
     Indication: BACK PAIN
  7. OXYCODONE [Concomitant]
     Indication: BACK PAIN
  8. NITROSTAT [Concomitant]
     Indication: CHEST PAIN

REACTIONS (2)
  - Surgery [Unknown]
  - Lung neoplasm malignant [Unknown]
